FAERS Safety Report 9977351 (Version 1)
Quarter: 2014Q1

REPORT INFORMATION
  Report Type: Report from Study
  Country: US (occurrence: US)
  Receive Date: 20140306
  Receipt Date: 20140306
  Transmission Date: 20141002
  Serious: No
  Sender: FDA-Public Use
  Company Number: US-ABBVIE-13P-163-1168697-00

PATIENT
  Age: 29 Year
  Sex: Male
  Weight: 113.5 kg

DRUGS (2)
  1. HUMIRA [Suspect]
     Indication: PSORIASIS
     Dates: start: 201208, end: 201209
  2. HUMIRA [Suspect]
     Dates: start: 201212

REACTIONS (2)
  - Psoriasis [Not Recovered/Not Resolved]
  - Nausea [Unknown]
